FAERS Safety Report 8182418-7 (Version None)
Quarter: 2012Q1

REPORT INFORMATION
  Report Type: 
  Country: None (occurrence: None)
  Receive Date: 20120304
  Receipt Date: 20120221
  Transmission Date: 20120608
  Serious: Yes (Hospitalization, Other)
  Sender: FDA-Public Use
  Company Number: BE-BRISTOL-MYERS SQUIBB COMPANY-16429953

PATIENT
  Age: 64 Year
  Sex: Male

DRUGS (3)
  1. LISODREN [Suspect]
     Indication: ADRENOCORTICAL CARCINOMA
     Dates: start: 20111201, end: 20120209
  2. HYDROCORTISONE [Concomitant]
     Dosage: 1DF: 55 UNS
  3. TRAMADOL HCL [Concomitant]
     Dates: start: 20120126

REACTIONS (5)
  - GENERAL PHYSICAL HEALTH DETERIORATION [None]
  - NEOPLASM MALIGNANT [None]
  - DECREASED APPETITE [None]
  - ASTHENIA [None]
  - NIGHTMARE [None]
